FAERS Safety Report 6901525-7 (Version None)
Quarter: 2010Q3

REPORT INFORMATION
  Report Type: 
  Country: None (occurrence: None)
  Receive Date: 20100803
  Receipt Date: 20100726
  Transmission Date: 20110219
  Serious: Yes (Life-Threatening, Hospitalization)
  Sender: FDA-Public Use
  Company Number: GB-AMGEN-QUU427513

PATIENT
  Sex: Female
  Weight: 56.7 kg

DRUGS (14)
  1. ENBREL [Suspect]
     Indication: RHEUMATOID ARTHRITIS
     Route: 058
     Dates: start: 20100201, end: 20100601
  2. ASPIRIN [Concomitant]
     Dosage: UNKNOWN
  3. BISOPROLOL FUMARATE [Concomitant]
     Dosage: UNKNOWN
  4. HYDROXOCOBALAMIN [Concomitant]
     Dosage: UNKNOWN
  5. EZETROL [Concomitant]
     Dosage: UNKNOWN
  6. VESICARE [Concomitant]
     Dosage: UNKNOWN
  7. NICORANDIL [Concomitant]
     Dosage: UNKNOWN
  8. NIZATIDINE [Concomitant]
     Dosage: UNKNOWN
  9. PLAVIX [Concomitant]
     Dosage: UNKNOWN
  10. RISEDRONATE SODIUM [Concomitant]
     Dosage: UNKNOWN
  11. SIMVASTATIN [Concomitant]
     Dosage: UNKNOWN
  12. TRAMADOL HYDROCHLORIDE [Concomitant]
     Dosage: UNKNOWN
  13. ADCAL [Concomitant]
     Dosage: UNKNOWN
  14. METHOTREXATE [Concomitant]
     Indication: RHEUMATOID ARTHRITIS
     Route: 048
     Dates: start: 20070501, end: 20100601

REACTIONS (1)
  - PNEUMONITIS [None]
